FAERS Safety Report 8933406 (Version 4)
Quarter: 2013Q1

REPORT INFORMATION
  Report Type: Report from Study
  Country: US (occurrence: US)
  Receive Date: 20121128
  Receipt Date: 20130118
  Transmission Date: 20140127
  Serious: Yes (Other)
  Sender: FDA-Public Use
  Company Number: US-PURDUE-USA-2012-0096200

PATIENT
  Sex: Male

DRUGS (1)
  1. OXYCONTIN (NDA 22-272) [Suspect]
     Indication: PAIN
     Dosage: 320 MG, Q12H
     Route: 048

REACTIONS (3)
  - Pneumonia [Recovered/Resolved]
  - General physical health deterioration [Unknown]
  - Myelodysplastic syndrome [Unknown]
